FAERS Safety Report 7322032-6 (Version None)
Quarter: 2011Q1

REPORT INFORMATION
  Report Type: 
  Country: None (occurrence: None)
  Receive Date: 20110228
  Receipt Date: 20110220
  Transmission Date: 20110831
  Serious: Yes (Other)
  Sender: FDA-Public Use
  Company Number: US-BAXTER-2011BH004558

PATIENT

DRUGS (4)
  1. DOXORUBICIN HCL [Suspect]
     Indication: LUNG NEOPLASM MALIGNANT
     Route: 065
  2. DOCETAXEL [Suspect]
     Indication: LUNG NEOPLASM MALIGNANT
     Route: 065
  3. CYCLOPHOSPHAMIDE [Suspect]
     Indication: LUNG NEOPLASM MALIGNANT
     Route: 048
  4. NEUPOGEN [Suspect]
     Indication: LUNG NEOPLASM MALIGNANT
     Route: 042

REACTIONS (4)
  - THROMBOCYTOPENIA [None]
  - PALMAR-PLANTAR ERYTHRODYSAESTHESIA SYNDROME [None]
  - ANAEMIA [None]
  - NEUTROPENIA [None]
